FAERS Safety Report 5748695-4 (Version None)
Quarter: 2008Q2

REPORT INFORMATION
  Report Type: 
  Country: None (occurrence: None)
  Receive Date: 20080521
  Receipt Date: 20080513
  Transmission Date: 20081010
  Serious: Yes (Other)
  Sender: FDA-Public Use
  Company Number: 08H-161-0314282-00

PATIENT
  Age: 25 Year
  Sex: Male

DRUGS (12)
  1. FENTANYL CITRATE [Suspect]
     Indication: INDUCTION OF ANAESTHESIA
     Dosage: 20 MCG, INTRATHECAL; 2 MCG/KG,
  2. FENTANYL CITRATE [Suspect]
     Indication: SPINAL ANAESTHESIA
     Dosage: 20 MCG, INTRATHECAL; 2 MCG/KG,
  3. 0.5% BUPIVACAINE (BUPIVACAINE) [Concomitant]
  4. MIDAZOLAM HCL [Concomitant]
  5. PROPOFOL [Concomitant]
  6. VECURONIUM (VECURONIUM) [Concomitant]
  7. 50% OXYGEN (OXYGEN) [Concomitant]
  8. NITROUS OXIDE W/ OXYGEN [Concomitant]
  9. TENOXICAM (TENOXICAM) [Concomitant]
  10. MORPHINE [Concomitant]
  11. DIPHENHYDRAMINE HCL [Concomitant]
  12. DEXAMETHASONE TAB [Concomitant]

REACTIONS (1)
  - SEROTONIN SYNDROME [None]
